FAERS Safety Report 11848554 (Version 1)
Quarter: 2015Q4

REPORT INFORMATION
  Report Type: Report from Study
  Country: US (occurrence: US)
  Receive Date: 20151218
  Receipt Date: 20151218
  Transmission Date: 20160305
  Serious: No
  Sender: FDA-Public Use
  Company Number: US-AMGEN-USASL2015134800

PATIENT
  Age: 46 Year
  Sex: Female

DRUGS (3)
  1. ENBREL [Suspect]
     Active Substance: ETANERCEPT
     Indication: RHEUMATOID ARTHRITIS
     Dosage: 25 MG, 2 TIMES/WK
     Route: 065
     Dates: start: 201407
  2. METHOTREXATE [Concomitant]
     Active Substance: METHOTREXATE
     Dosage: UNK
  3. COUMADIN [Concomitant]
     Active Substance: WARFARIN SODIUM
     Dosage: UNK

REACTIONS (11)
  - Pigmentation disorder [Unknown]
  - Fungal skin infection [Unknown]
  - Vulvovaginal mycotic infection [Unknown]
  - Cough [Unknown]
  - Skin haemorrhage [Not Recovered/Not Resolved]
  - Rhinitis allergic [Unknown]
  - Skin irritation [Unknown]
  - Skin disorder [Not Recovered/Not Resolved]
  - Hypersensitivity [Unknown]
  - Mobility decreased [Unknown]
  - Asthma [Unknown]

NARRATIVE: CASE EVENT DATE: 201512
